FAERS Safety Report 13305168 (Version 2)
Quarter: 2017Q2

REPORT INFORMATION
  Report Type: Spontaneous
  Country: US (occurrence: US)
  Receive Date: 20170308
  Receipt Date: 20170404
  Transmission Date: 20170830
  Serious: Yes (Hospitalization, Other)
  Sender: FDA-Public Use
  Company Number: US-TAIHO ONCOLOGY INC-EU-2017-00407

PATIENT
  Age: 47 Year
  Sex: Male

DRUGS (9)
  1. PARACETAMOL/HYDROCODONE BITARTRATE [Concomitant]
     Dosage: NI
  2. LONSURF [Suspect]
     Active Substance: TIPIRACIL HYDROCHLORIDE\TRIFLURIDINE
     Indication: COLON CANCER METASTATIC
     Route: 048
     Dates: start: 20170125
  3. LOVENOX [Concomitant]
     Active Substance: ENOXAPARIN SODIUM
     Indication: PULMONARY EMBOLISM
  4. ALPRAZOLAM. [Concomitant]
     Active Substance: ALPRAZOLAM
     Dosage: NI
  5. BUSPIRONE [Concomitant]
     Active Substance: BUSPIRONE HYDROCHLORIDE
     Dosage: NI
  6. LOVENOX [Concomitant]
     Active Substance: ENOXAPARIN SODIUM
     Indication: DEEP VEIN THROMBOSIS
     Dosage: REDUCED TO 100 MG DAILY IN FEB 2017
  7. OXYCODONE [Concomitant]
     Active Substance: OXYCODONE
     Dosage: NI
  8. LOPERAMIDE [Concomitant]
     Active Substance: LOPERAMIDE
     Dosage: NI
  9. PROMETHAZINE [Concomitant]
     Active Substance: PROMETHAZINE\PROMETHAZINE HYDROCHLORIDE
     Dosage: NI

REACTIONS (16)
  - Anxiety [Unknown]
  - Thrombocytopenia [Unknown]
  - Arthralgia [Unknown]
  - Myalgia [Unknown]
  - Small intestinal obstruction [Not Recovered/Not Resolved]
  - Neutropenia [Unknown]
  - Insomnia [Unknown]
  - Disease progression [Unknown]
  - Muscular weakness [Unknown]
  - Weight decreased [Unknown]
  - Renal failure [Unknown]
  - Dyspnoea [Unknown]
  - Urinary hesitation [Unknown]
  - Oedema peripheral [Unknown]
  - Malaise [Unknown]
  - Fatigue [Unknown]

NARRATIVE: CASE EVENT DATE: 2017
